FAERS Safety Report 17038186 (Version 3)
Quarter: 2020Q1

REPORT INFORMATION
  Report Type: Spontaneous
  Country: US (occurrence: US)
  Receive Date: 20191115
  Receipt Date: 20200110
  Transmission Date: 20200409
  Serious: Yes (Hospitalization, Other)
  Sender: FDA-Public Use
  Company Number: US-ASTRAZENECA-2019SF60769

PATIENT
  Age: 73 Year
  Sex: Female
  Weight: 66.2 kg

DRUGS (2)
  1. BYDUREON BCISE [Suspect]
     Active Substance: EXENATIDE
     Indication: DIABETES MELLITUS
     Dosage: 2 MG ONCE WEEKLY OR A LITTLE LONGER
     Route: 058
  2. BYDUREON BCISE [Suspect]
     Active Substance: EXENATIDE
     Indication: DIABETES MELLITUS
     Route: 058
     Dates: start: 2017

REACTIONS (10)
  - Injection site urticaria [Not Recovered/Not Resolved]
  - Injection site mass [Unknown]
  - Wrong technique in device usage process [Unknown]
  - Device leakage [Unknown]
  - Ankle fracture [Recovered/Resolved]
  - Pulmonary embolism [Recovered/Resolved]
  - Myocardial infarction [Recovered/Resolved]
  - Injection site extravasation [Unknown]
  - Fall [Recovered/Resolved]
  - Thrombosis [Recovered/Resolved]

NARRATIVE: CASE EVENT DATE: 201904
